FAERS Safety Report 17667457 (Version 1)
Quarter: 2020Q2

REPORT INFORMATION
  Report Type: Spontaneous
  Country: US (occurrence: US)
  Receive Date: 20200414
  Receipt Date: 20200414
  Transmission Date: 20200713
  Serious: Yes (Hospitalization)
  Sender: FDA-Public Use
  Company Number: US-JNJFOC-20200409201

PATIENT
  Age: 52 Year
  Sex: Female

DRUGS (1)
  1. INVOKANA [Suspect]
     Active Substance: CANAGLIFLOZIN
     Indication: TYPE 2 DIABETES MELLITUS
     Dosage: VARYING DOSE OF 100 MG AND 300 MG
     Route: 048

REACTIONS (2)
  - Gangrene [Unknown]
  - Foot amputation [Unknown]

NARRATIVE: CASE EVENT DATE: 201610
